FAERS Safety Report 7426205-3 (Version None)
Quarter: 2011Q2

REPORT INFORMATION
  Report Type: 
  Country: None (occurrence: None)
  Receive Date: 20110420
  Receipt Date: 20101202
  Transmission Date: 20111010
  Serious: Yes (Death)
  Sender: FDA-Public Use
  Company Number: Z0006802A

PATIENT
  Sex: Male
  Weight: 78.5 kg

DRUGS (3)
  1. FLUDARABINE [Suspect]
     Route: 042
     Dates: start: 20100401, end: 20100602
  2. OFATUMUMAB [Suspect]
     Route: 042
     Dates: start: 20100331, end: 20100531
  3. CYCLOPHOSPHAMIDE [Suspect]
     Route: 042
     Dates: start: 20100401, end: 20100602

REACTIONS (1)
  - DEATH [None]
